FAERS Safety Report 10261636 (Version 1)
Quarter: 2014Q2

REPORT INFORMATION
  Report Type: Spontaneous
  Country: AR (occurrence: AR)
  Receive Date: 20140626
  Receipt Date: 20140626
  Transmission Date: 20141212
  Serious: Yes (Other)
  Sender: FDA-Public Use
  Company Number: CHPA2014AR008585

PATIENT
  Age: 55 Year
  Sex: Female

DRUGS (1)
  1. NICOTINELL GUM [Suspect]
     Dosage: 2 OR 3 DAILY
     Route: 048
     Dates: start: 2009

REACTIONS (2)
  - Drug dependence [Unknown]
  - Incorrect drug administration duration [Unknown]
